FAERS Safety Report 9819277 (Version 1)
Quarter: 2014Q1

REPORT INFORMATION
  Report Type: Spontaneous
  Country: US (occurrence: US)
  Receive Date: 20140115
  Receipt Date: 20140115
  Transmission Date: 20141002
  Serious: Yes (Hospitalization)
  Sender: FDA-Public Use
  Company Number: US-GLAXOSMITHKLINE-A1056687A

PATIENT
  Age: 60 Year
  Sex: Female

DRUGS (4)
  1. NICORETTE NICOTINE POLACRILEX LOZENGE, 4MG [Suspect]
     Indication: SMOKING CESSATION THERAPY
     Route: 002
  2. PAXIL [Concomitant]
  3. OXYCODONE [Concomitant]
  4. FENTANYL [Concomitant]

REACTIONS (6)
  - Myocardial infarction [Recovered/Resolved]
  - Hypertension [Recovered/Resolved]
  - Vasoconstriction [Recovered/Resolved]
  - Heart rate increased [Recovered/Resolved]
  - Muscle tightness [Recovered/Resolved]
  - Feeling abnormal [Recovered/Resolved]
